FAERS Safety Report 25395067 (Version 1)
Quarter: 2025Q2

REPORT INFORMATION
  Report Type: Spontaneous
  Country: US (occurrence: US)
  Receive Date: 20250604
  Receipt Date: 20250604
  Transmission Date: 20250716
  Serious: No
  Sender: CIPLA
  Company Number: US-CIPLA LTD.-2025US06529

PATIENT

DRUGS (16)
  1. LENALIDOMIDE [Suspect]
     Active Substance: LENALIDOMIDE
     Indication: Plasma cell myeloma
     Dosage: 10 MILLIGRAM, QD
     Route: 048
     Dates: start: 20241028
  2. LENALIDOMIDE [Suspect]
     Active Substance: LENALIDOMIDE
     Dosage: 10 MILLIGRAM, QD, TAKE ONE CAPSULE 10 MG BY MOUTH ONCE DAILY FOR 28 DAYS
     Route: 048
  3. LENALIDOMIDE [Suspect]
     Active Substance: LENALIDOMIDE
     Dosage: 10 MILLIGRAM, QD, TAKE ONE CAPSULE 10 MG BY MOUTH ONCE DAILY FOR 28 DAYS
     Route: 048
  4. LENALIDOMIDE [Suspect]
     Active Substance: LENALIDOMIDE
     Dosage: 10 MILLIGRAM, QD, TAKE ONE CAPSULE 10 MG BY MOUTH ONCE DAILY FOR 14 DAYS ON 07 DAYS OFF OF EACH 21 D
     Route: 048
  5. LENALIDOMIDE [Suspect]
     Active Substance: LENALIDOMIDE
     Dosage: 10 MILLIGRAM, QD, TAKE ONE CAPSULE 10 MG BY MOUTH ONCE DAILY FOR 14 DAYS ON 07 DAYS OFF OF EACH 21 D
     Route: 048
  6. LENALIDOMIDE [Suspect]
     Active Substance: LENALIDOMIDE
     Dosage: 10 MILLIGRAM, QD, TAKE ONE CAPSULE 10 MG BY MOUTH ONCE DAILY FOR 14 DAYS ON 07 DAYS OFF OF EACH 21 D
     Route: 048
     Dates: start: 2025
  7. LENALIDOMIDE [Suspect]
     Active Substance: LENALIDOMIDE
     Dosage: 10 MILLIGRAM, QD, TAKE ONE CAPSULE 10 MG BY MOUTH ONCE DAILY FOR 14 DAYS ON 07 DAYS OFF OF EACH 21 D
     Route: 048
     Dates: start: 2025
  8. LENALIDOMIDE [Suspect]
     Active Substance: LENALIDOMIDE
     Dosage: 10 MILLIGRAM, QD, TAKE ONE CAPSULE 10 MG BY MOUTH ONCE DAILY FOR 14 DAYS ON 07 DAYS OFF OF EACH 21 D
     Route: 048
     Dates: start: 2025
  9. LENALIDOMIDE [Suspect]
     Active Substance: LENALIDOMIDE
     Dosage: 10 MILLIGRAM, QD, TAKE ONE CAPSULE 10 MG BY MOUTH ONCE DAILY FOR 14 DAYS ON 07 DAYS OFF OF EACH 21 D
     Route: 048
     Dates: start: 2025
  10. LENALIDOMIDE [Suspect]
     Active Substance: LENALIDOMIDE
     Dosage: 10 MILLIGRAM, QD,TAKE ONE CAPSULE 10 MG BY MOUTH ONCE DAILY FOR 14 DAYS ON 07 DAYS OFF OF EACH 21 DA
     Route: 048
     Dates: start: 2025
  11. LENALIDOMIDE [Suspect]
     Active Substance: LENALIDOMIDE
     Dosage: 10 MILLIGRAM, QD, TAKE ONE CAPSULE 10 MG BY MOUTH ONCE DAILY FOR 14 DAYS ON 07 DAYS OFF OF EACH 21 D
     Route: 048
     Dates: start: 2025
  12. DEXAMETHASONE [Concomitant]
     Active Substance: DEXAMETHASONE
     Indication: Product used for unknown indication
     Route: 065
  13. ZYRTEC [Concomitant]
     Active Substance: CETIRIZINE HYDROCHLORIDE
     Indication: Product used for unknown indication
     Route: 065
  14. PRAVASTATIN SODIUM [Concomitant]
     Active Substance: PRAVASTATIN SODIUM
     Indication: Product used for unknown indication
     Route: 065
  15. FARXIGA [Concomitant]
     Active Substance: DAPAGLIFLOZIN PROPANEDIOL
     Indication: Product used for unknown indication
     Route: 048
  16. FERROUS SULFATE [Concomitant]
     Active Substance: FERROUS SULFATE
     Indication: Product used for unknown indication
     Route: 048

REACTIONS (1)
  - Diarrhoea [Recovering/Resolving]

NARRATIVE: CASE EVENT DATE: 20250115
